FAERS Safety Report 8029394-5 (Version None)
Quarter: 2012Q1

REPORT INFORMATION
  Report Type: 
  Country: None (occurrence: None)
  Receive Date: 20120106
  Receipt Date: 20111229
  Transmission Date: 20120608
  Serious: Yes (Other)
  Sender: FDA-Public Use
  Company Number: DZ-ROCHE-1015851

PATIENT
  Age: 62 Year
  Sex: Female

DRUGS (2)
  1. HERCEPTIN [Suspect]
     Indication: BREAST CANCER
     Dates: start: 20110828, end: 20110828
  2. FEMARA [Concomitant]
     Indication: BREAST CANCER

REACTIONS (4)
  - LYMPHOEDEMA [None]
  - PAIN IN EXTREMITY [None]
  - ANGIOPATHY [None]
  - ERYTHEMA [None]
